FAERS Safety Report 5999630-5 (Version None)
Quarter: 2008Q4

REPORT INFORMATION
  Report Type: 
  Country: None (occurrence: None)
  Receive Date: 20081215
  Receipt Date: 20081202
  Transmission Date: 20090506
  Serious: Yes (Other)
  Sender: FDA-Public Use
  Company Number: BR-ROCHE-598261

PATIENT
  Sex: Female
  Weight: 59.2 kg

DRUGS (2)
  1. ROACUTAN [Suspect]
     Indication: ACNE
     Route: 048
     Dates: start: 20080617, end: 20081101
  2. SELENE [Concomitant]
     Indication: CONTRACEPTION
     Route: 048

REACTIONS (7)
  - ABNORMAL BEHAVIOUR [None]
  - GASTROINTESTINAL DISORDER [None]
  - HYPERHIDROSIS [None]
  - MENTAL DISORDER [None]
  - MUCOSAL DRYNESS [None]
  - PANIC ATTACK [None]
  - VULVOVAGINAL DRYNESS [None]
